FAERS Safety Report 6977929-3 (Version None)
Quarter: 2010Q3

REPORT INFORMATION
  Report Type: 
  Country: None (occurrence: None)
  Receive Date: 20100913
  Receipt Date: 20100830
  Transmission Date: 20110219
  Serious: Yes (Other)
  Sender: FDA-Public Use
  Company Number: PHHY2010US39990

PATIENT
  Sex: Female
  Weight: 65.1 kg

DRUGS (5)
  1. EXJADE [Suspect]
     Indication: SICKLE CELL ANAEMIA
     Dosage: 1500 MG, QD
     Route: 048
     Dates: end: 20100401
  2. EXJADE [Suspect]
     Dosage: 2000 MG, DAILY
     Route: 048
     Dates: start: 20100401, end: 20100601
  3. HYDROXYUREA [Concomitant]
     Dosage: 1500 MG, DAILY
     Route: 048
     Dates: start: 20041201, end: 20100401
  4. ASPIRIN [Concomitant]
     Dosage: 81 MG, DAILY
     Route: 048
     Dates: start: 20061001
  5. XOPENEX [Concomitant]
     Dosage: UNK

REACTIONS (3)
  - ACUTE CHEST SYNDROME [None]
  - DRUG EXPOSURE DURING PREGNANCY [None]
  - PULMONARY HYPERTENSION [None]
